FAERS Safety Report 9668699 (Version 1)
Quarter: 2013Q4

REPORT INFORMATION
  Report Type: Spontaneous
  Country: US (occurrence: US)
  Receive Date: 20131105
  Receipt Date: 20131105
  Transmission Date: 20140711
  Serious: No
  Sender: FDA-Public Use
  Company Number: US-ENDO PHARMACEUTICALS INC.-PRED20130003

PATIENT
  Age: 87 Year
  Sex: Female

DRUGS (3)
  1. PREDNISONE TABLETS [Suspect]
     Indication: PRODUCT USED FOR UNKNOWN INDICATION
     Dosage: UNK (TAPERING OFF)
     Route: 048
     Dates: start: 2012
  2. PREDNISONE TABLETS [Suspect]
     Dosage: UNK
     Route: 048
     Dates: end: 2012
  3. JAKAFI [Suspect]
     Indication: MYELOFIBROSIS
     Route: 048
     Dates: start: 20120806

REACTIONS (3)
  - Back pain [Not Recovered/Not Resolved]
  - Contusion [Not Recovered/Not Resolved]
  - Petechiae [Not Recovered/Not Resolved]
